FAERS Safety Report 7994059-2 (Version None)
Quarter: 2011Q4

REPORT INFORMATION
  Report Type: 
  Country: None (occurrence: None)
  Receive Date: 20111220
  Receipt Date: 20111208
  Transmission Date: 20120403
  Serious: Yes (Hospitalization)
  Sender: FDA-Public Use
  Company Number: US-BAYER-2011-048161

PATIENT
  Age: 46 Year
  Sex: Female
  Weight: 58.503 kg

DRUGS (5)
  1. PANTOPRAZOLE [Concomitant]
     Dosage: 40 MG, QD
     Route: 048
  2. YASMIN [Suspect]
     Indication: CONTRACEPTION
     Dosage: UNK
     Dates: start: 20050101, end: 20100101
  3. IRON [Concomitant]
     Route: 048
  4. LOPRESSOR SR [Concomitant]
     Dosage: 50 MG, QD
     Route: 048
  5. DROSPIRENONE AND ETHINYL ESTRADIOL [Suspect]
     Indication: CONTRACEPTION
     Dosage: UNK
     Dates: start: 20050101, end: 20100101

REACTIONS (2)
  - CEREBROVASCULAR ACCIDENT [None]
  - PAIN [None]
